FAERS Safety Report 18779377 (Version 4)
Quarter: 2021Q2

REPORT INFORMATION
  Report Type: Spontaneous
  Country: AU (occurrence: AU)
  Receive Date: 20210125
  Receipt Date: 20210423
  Transmission Date: 20210717
  Serious: Yes (Hospitalization)
  Sender: FDA-Public Use
  Company Number: AU-AMGEN-AUSSP2021009762

PATIENT
  Sex: Female
  Weight: 82 kg

DRUGS (4)
  1. ENBREL [Suspect]
     Active Substance: ETANERCEPT
     Indication: RHEUMATOID ARTHRITIS
     Dosage: 50 MG, WEEKLY
     Route: 065
     Dates: start: 20201021, end: 20201103
  2. CELEBREX [Concomitant]
     Active Substance: CELECOXIB
     Dosage: 200 MG, DAILY
  3. ENBREL [Suspect]
     Active Substance: ETANERCEPT
     Dosage: 50 MG, WEEKLY
     Route: 065
     Dates: start: 20201215, end: 20201229
  4. METHOTREXATE SODIUM. [Concomitant]
     Active Substance: METHOTREXATE SODIUM
     Dosage: 25 MG, WEEKLY

REACTIONS (6)
  - Arthritis [Recovering/Resolving]
  - Drug ineffective [Recovered/Resolved]
  - Diarrhoea [Unknown]
  - Influenza like illness [Recovered/Resolved]
  - Illness [Not Recovered/Not Resolved]
  - Arthralgia [Not Recovered/Not Resolved]
